FAERS Safety Report 8790556 (Version 1)
Quarter: 2012Q4

REPORT INFORMATION
  Report Type: Spontaneous
  Country: US (occurrence: None)
  Receive Date: 20120912
  Receipt Date: 20120912
  Transmission Date: 20130627
  Serious: Yes (Other)
  Sender: FDA-Public Use
  Company Number: None

PATIENT
  Age: 47 Year
  Sex: Female

DRUGS (9)
  1. CREST 3D WHITE ADVANCED VIVID ENAMEL RENEWAL [Suspect]
     Dosage: 1 application unknown intraoral
  2. FISH OIL (FISH OIL) [Concomitant]
  3. MULTIVITAMIN /00097801/ (ASCORBIC ACID, CALCIUM PANTOTHENATE, ERGOCALCIFEROL, NICOTINAMIDE, PYRIDOXINE HYDROCHLORIDE, RETINOL, RIBOFLAVIN, THIAMINE, HYDROCHLORIDE) [Concomitant]
  4. EXFORGE /01634301/ (AMLODIPINE, VALSARTAN) [Concomitant]
  5. LEXAPRO (ESCITALOPRAM OXALATE) [Concomitant]
  6. FLEXERIL /00428402/ (CYCLOBENZAPRINE HYDROCHLORIDE) [Concomitant]
  7. SYNTHROID (LEVOTHYROXINE SODIUM) [Concomitant]
  8. NEXIUM /01479302/ (ESOMEPRAZOLE MAGNESIUM) [Concomitant]
  9. CRESTOR /01588601/ (ROSUVASTATIN) [Concomitant]

REACTIONS (12)
  - Injury [None]
  - Chemical burn of gastrointestinal tract [None]
  - Gingival erosion [None]
  - Gingival disorder [None]
  - Gingival recession [None]
  - Gingival ulceration [None]
  - Gingival pain [None]
  - Gingivitis [None]
  - Leukoplakia [None]
  - Cheilitis [None]
  - Bone loss [None]
  - Oral mucosal exfoliation [None]
